FAERS Safety Report 12388424 (Version 1)
Quarter: 2016Q2

REPORT INFORMATION
  Report Type: Spontaneous
  Country: US (occurrence: US)
  Receive Date: 20160520
  Receipt Date: 20160520
  Transmission Date: 20160815
  Serious: No
  Sender: FDA-Public Use
  Company Number: US-009507513-1605USA008130

PATIENT
  Age: 80 Year
  Sex: Male

DRUGS (1)
  1. SINEMET [Suspect]
     Active Substance: CARBIDOPA\LEVODOPA
     Indication: PARKINSON^S DISEASE
     Dosage: 25 MG-100 MG/ 3 TIMES A DAY
     Route: 048
     Dates: start: 2015

REACTIONS (2)
  - Salivary hypersecretion [Unknown]
  - Dysgeusia [Unknown]
